FAERS Safety Report 24830457 (Version 1)
Quarter: 2025Q1

REPORT INFORMATION
  Report Type: Spontaneous
  Country: US (occurrence: None)
  Receive Date: 20250109
  Receipt Date: 20250109
  Transmission Date: 20250409
  Serious: Yes (Hospitalization, Disabling)
  Sender: FDA-CTU
  Company Number: None

PATIENT
  Age: 46 Year
  Sex: Female
  Weight: 78.75 kg

DRUGS (5)
  1. SUCRALFATE [Suspect]
     Active Substance: SUCRALFATE
     Indication: Peptic ulcer
     Dosage: 1 CAPSULE 4 TIMES A DAY ORAL ?
     Route: 048
     Dates: start: 20241217, end: 20250108
  2. CELEXA [Suspect]
     Active Substance: CITALOPRAM HYDROBROMIDE
  3. VITAMIN D3 [Suspect]
     Active Substance: CHOLECALCIFEROL
  4. LANSOPRAZOLE [Suspect]
     Active Substance: LANSOPRAZOLE
  5. Womens Care Probiotic once per week [Concomitant]

REACTIONS (5)
  - Electric shock sensation [None]
  - Panic attack [None]
  - Withdrawal syndrome [None]
  - Suicidal ideation [None]
  - Drug interaction [None]

NARRATIVE: CASE EVENT DATE: 20250108
